FAERS Safety Report 25494271 (Version 1)
Quarter: 2025Q2

REPORT INFORMATION
  Report Type: Spontaneous
  Country: US (occurrence: US)
  Receive Date: 20250630
  Receipt Date: 20250630
  Transmission Date: 20250716
  Serious: No
  Sender: FERRING
  Company Number: US-FERRINGPH-2025FE01620

PATIENT
  Age: 66 Year
  Sex: Male

DRUGS (2)
  1. ADSTILADRIN [Suspect]
     Active Substance: NADOFARAGENE FIRADENOVEC-VNCG
     Indication: Product used for unknown indication
     Route: 065
     Dates: start: 20250328
  2. GEMTESA [Concomitant]
     Active Substance: VIBEGRON
     Dates: start: 20250328

REACTIONS (3)
  - Urine output decreased [Unknown]
  - Micturition urgency [Unknown]
  - Instillation site discharge [Unknown]

NARRATIVE: CASE EVENT DATE: 20250328
